FAERS Safety Report 13178918 (Version 1)
Quarter: 2017Q1

REPORT INFORMATION
  Report Type: Spontaneous
  Country: US (occurrence: US)
  Receive Date: 20170202
  Receipt Date: 20170202
  Transmission Date: 20170428
  Serious: No
  Sender: FDA-Public Use
  Company Number: US-PFIZER INC-2016463072

PATIENT
  Age: 66 Year
  Sex: Female

DRUGS (2)
  1. FEMARA [Concomitant]
     Active Substance: LETROZOLE
     Dosage: 2.5 MG, DAILY
  2. IBRANCE [Suspect]
     Active Substance: PALBOCICLIB
     Indication: BREAST CANCER FEMALE
     Dosage: 125 MG, CYCLIC (DAILY X 21 DAYS/ 7 DAYS REST)

REACTIONS (1)
  - Neoplasm progression [Unknown]
